FAERS Safety Report 5839426-8 (Version None)
Quarter: 2008Q3

REPORT INFORMATION
  Report Type: 
  Country: None (occurrence: None)
  Receive Date: 20080806
  Receipt Date: 20031002
  Transmission Date: 20090109
  Serious: Yes (Death)
  Sender: FDA-Public Use
  Company Number: 0710012

PATIENT
  Sex: Female

DRUGS (1)
  1. ORFADIN [Suspect]
     Indication: TYROSINAEMIA
     Dosage: 10 MG, ORAL
     Route: 048
     Dates: start: 20020507, end: 20021001

REACTIONS (1)
  - RESPIRATORY TRACT INFECTION [None]
